FAERS Safety Report 21308694 (Version 5)
Quarter: 2022Q4

REPORT INFORMATION
  Report Type: Report from Study
  Country: US (occurrence: US)
  Receive Date: 20220908
  Receipt Date: 20221217
  Transmission Date: 20230113
  Serious: Yes (Hospitalization, Other)
  Sender: FDA-Public Use
  Company Number: US-002147023-NVSC2022US203147

PATIENT
  Sex: Female

DRUGS (1)
  1. TABRECTA [Suspect]
     Active Substance: CAPMATINIB
     Indication: Product used for unknown indication
     Dosage: UNK
     Route: 048
     Dates: start: 20220901

REACTIONS (8)
  - Nephrolithiasis [Unknown]
  - Ureteric obstruction [Unknown]
  - Abdominal pain upper [Recovered/Resolved]
  - Muscle spasms [Unknown]
  - Nausea [Unknown]
  - Peripheral swelling [Unknown]
  - Decreased appetite [Unknown]
  - Diarrhoea [Unknown]
